FAERS Safety Report 7167300-6 (Version None)
Quarter: 2010Q4

REPORT INFORMATION
  Report Type: 
  Country: None (occurrence: None)
  Receive Date: 20101216
  Receipt Date: 20101203
  Transmission Date: 20110411
  Serious: Yes (Other)
  Sender: FDA-Public Use
  Company Number: CA-ELI_LILLY_AND_COMPANY-CA201012000902

PATIENT
  Sex: Male

DRUGS (12)
  1. ZYPREXA [Suspect]
     Indication: SCHIZOAFFECTIVE DISORDER
     Dosage: 5 MG, DAILY (1/D)
     Route: 048
     Dates: start: 20040227
  2. ZYPREXA [Suspect]
     Dosage: 7.5 MG, DAILY (1/D)
     Route: 048
  3. NOVO-OLANZAPINE [Concomitant]
     Indication: SCHIZOAFFECTIVE DISORDER
     Dosage: 7.5 MG, DAILY (1/D)
     Route: 048
  4. TEMAZEP [Concomitant]
     Dosage: 30 MG, UNKNOWN
     Route: 065
  5. EFFEXOR XR [Concomitant]
     Dosage: 225 MG, UNKNOWN
     Route: 065
  6. EPIVAL [Concomitant]
     Dosage: 500 MG, UNKNOWN
     Route: 065
  7. APO-RISPERIDONE [Concomitant]
     Dosage: 4 MG, UNKNOWN
     Route: 065
  8. APO-CITALOPRAM [Concomitant]
     Dosage: 20 MG, DAILY (1/D)
     Route: 048
  9. SEROQUEL [Concomitant]
     Dosage: 300 MG, 2/D
     Route: 048
     Dates: start: 20080311
  10. ZOPICLONE [Concomitant]
     Dosage: 7.5 MG, AS NEEDED
     Route: 048
     Dates: start: 20080311, end: 20090416
  11. NOVO-CHLORPROMAZINE [Concomitant]
     Dosage: 50 MG, UNKNOWN
     Route: 065
  12. ATIVAN [Concomitant]
     Dosage: 1.5 D/F, AS NEEDED
     Route: 048
     Dates: start: 20070508, end: 20080624

REACTIONS (8)
  - CONVULSION [None]
  - HYPERTENSION [None]
  - HYPERTRIGLYCERIDAEMIA [None]
  - HYPOAESTHESIA [None]
  - HYPOGLYCAEMIA [None]
  - LOSS OF CONSCIOUSNESS [None]
  - TYPE 1 DIABETES MELLITUS [None]
  - VISION BLURRED [None]
